FAERS Safety Report 8520956-5 (Version None)
Quarter: 2012Q3

REPORT INFORMATION
  Report Type: 
  Country: None (occurrence: None)
  Receive Date: 20120719
  Receipt Date: 20120711
  Transmission Date: 20120928
  Serious: Yes (Hospitalization)
  Sender: FDA-Public Use
  Company Number: IT-TEVA-347612ISR

PATIENT
  Sex: Male

DRUGS (1)
  1. ACIDO ALENDRONICO [Suspect]

REACTIONS (1)
  - CONVULSION [None]
